FAERS Safety Report 25984469 (Version 1)
Quarter: 2025Q4

REPORT INFORMATION
  Report Type: Spontaneous
  Country: US (occurrence: None)
  Receive Date: 20251031
  Receipt Date: 20251031
  Transmission Date: 20260117
  Serious: Yes (Hospitalization)
  Sender: FDA-CTU
  Company Number: None

PATIENT
  Age: 58 Year
  Sex: Male

DRUGS (3)
  1. OCREVUS [Suspect]
     Active Substance: OCRELIZUMAB
  2. HYDROCHLOROTHIAZIDE [Suspect]
     Active Substance: HYDROCHLOROTHIAZIDE
  3. LANTUS [Suspect]
     Active Substance: INSULIN GLARGINE

REACTIONS (11)
  - Babesiosis [None]
  - Bacteraemia [None]
  - Colitis [None]
  - Sepsis [None]
  - Spleen ischaemia [None]
  - Hypotension [None]
  - Dehydration [None]
  - Hyponatraemia [None]
  - Mucosal hypertrophy [None]
  - White blood cell count decreased [None]
  - Platelet count increased [None]

NARRATIVE: CASE EVENT DATE: 20250912
